FAERS Safety Report 8361120-2 (Version None)
Quarter: 2012Q2

REPORT INFORMATION
  Report Type: 
  Country: None (occurrence: None)
  Receive Date: 20120515
  Receipt Date: 20120501
  Transmission Date: 20120825
  Serious: Yes (Hospitalization)
  Sender: FDA-Public Use
  Company Number: US-ROCHE-1041311

PATIENT
  Sex: Female

DRUGS (3)
  1. TRASTUZUMAB [Suspect]
     Indication: BREAST CANCER
  2. CARBOPLATIN [Suspect]
     Indication: BREAST CANCER
  3. TAXOTERE [Suspect]
     Indication: BREAST CANCER

REACTIONS (1)
  - BACTERAEMIA [None]
